FAERS Safety Report 8575789-0 (Version None)
Quarter: 2012Q3

REPORT INFORMATION
  Report Type: 
  Country: None (occurrence: None)
  Receive Date: 20120807
  Receipt Date: 20120730
  Transmission Date: 20120928
  Serious: Yes (Hospitalization, Disabling, Other)
  Sender: FDA-Public Use
  Company Number: US-MSD-1204USA02200

PATIENT

DRUGS (3)
  1. ACTONEL [Suspect]
     Indication: OSTEOPOROSIS
  2. FOSAMAX [Suspect]
     Indication: OSTEOPOROSIS
     Route: 048
     Dates: start: 20020101, end: 20070601
  3. FORTEO [Concomitant]
     Indication: OSTEOPOROSIS

REACTIONS (16)
  - TOOTH DISORDER [None]
  - GLOSSODYNIA [None]
  - STRESS FRACTURE [None]
  - OSTEONECROSIS OF JAW [None]
  - DENTAL CARIES [None]
  - LOW TURNOVER OSTEOPATHY [None]
  - OSTEOPOROSIS [None]
  - SPINAL FRACTURE [None]
  - TOOTH FRACTURE [None]
  - TOOTH INFECTION [None]
  - FEMUR FRACTURE [None]
  - TOOTH DEPOSIT [None]
  - GINGIVAL RECESSION [None]
  - DENTAL PLAQUE [None]
  - GINGIVAL PAIN [None]
  - GINGIVAL BLEEDING [None]
